FAERS Safety Report 5063198-0 (Version None)
Quarter: 2006Q3

REPORT INFORMATION
  Report Type: 
  Country: None (occurrence: None)
  Receive Date: 20060724
  Receipt Date: 20060714
  Transmission Date: 20061208
  Serious: Yes (Hospitalization, Other)
  Sender: FDA-Public Use
  Company Number: USA-2005-0020345

PATIENT
  Age: 43 Year
  Sex: Male

DRUGS (17)
  1. OXYCONTIN [Suspect]
     Indication: DRUG USE FOR UNKNOWN INDICATION
     Dosage: SEE TEXT
  2. LORTAB [Concomitant]
  3. BENADRYL [Concomitant]
  4. SOMA [Concomitant]
  5. LOPRESSOR [Concomitant]
  6. LIPITOR [Concomitant]
  7. ASPIRIN [Concomitant]
  8. PRINIVIL [Concomitant]
  9. PRAVACHOL [Concomitant]
  10. XANAX [Concomitant]
  11. COUMADIN [Concomitant]
  12. PAXIL [Concomitant]
  13. PLAVIX [Concomitant]
  14. NITROGLYCERIN SUBLINGUAL SPRAY [Concomitant]
  15. FOLIC ACID [Concomitant]
  16. VITAMIN B COMPLEX CAP [Concomitant]
  17. VITAMIN C AND E (ASCORBIC ACID, TOCOPHEROL) [Concomitant]

REACTIONS (43)
  - ACUTE MYOCARDIAL INFARCTION [None]
  - ANXIETY [None]
  - BACK PAIN [None]
  - BLOOD TESTOSTERONE DECREASED [None]
  - CARDIAC FAILURE CONGESTIVE [None]
  - CARDIOMEGALY [None]
  - CARPAL TUNNEL SYNDROME [None]
  - CONDITION AGGRAVATED [None]
  - CONSTIPATION [None]
  - CORONARY ARTERY DISEASE [None]
  - DRUG DEPENDENCE [None]
  - DYSPHONIA [None]
  - DYSPNOEA [None]
  - EMOTIONAL DISTRESS [None]
  - ESSENTIAL HYPERTENSION [None]
  - FATIGUE [None]
  - FEELING ABNORMAL [None]
  - GAIT DISTURBANCE [None]
  - HEADACHE [None]
  - HYPOAESTHESIA [None]
  - INADEQUATE ANALGESIA [None]
  - INJURY [None]
  - INTERVERTEBRAL DISC DISORDER [None]
  - INTERVERTEBRAL DISC PROTRUSION [None]
  - JOINT HYPEREXTENSION [None]
  - MALAISE [None]
  - NASAL CONGESTION [None]
  - NAUSEA [None]
  - ODYNOPHAGIA [None]
  - PAIN [None]
  - PALLOR [None]
  - PALPITATIONS [None]
  - PARAESTHESIA [None]
  - PELVIC PAIN [None]
  - RASH [None]
  - RHINORRHOEA [None]
  - ROAD TRAFFIC ACCIDENT [None]
  - SEDATION [None]
  - SKIN LACERATION [None]
  - SPINAL HAEMANGIOMA [None]
  - SYNCOPE [None]
  - TESTICULAR PAIN [None]
  - VOMITING [None]
